FAERS Safety Report 9887485 (Version 1)
Quarter: 2014Q1

REPORT INFORMATION
  Report Type: Spontaneous
  Country: BE (occurrence: None)
  Receive Date: 20140206
  Receipt Date: 20140206
  Transmission Date: 20141002
  Serious: Yes (Hospitalization)
  Sender: FDA-Public Use
  Company Number: 2014PL000017

PATIENT
  Age: 51 Year
  Sex: Male

DRUGS (2)
  1. AZATHIOPRINE [Suspect]
     Indication: CROHN^S DISEASE
  2. ENTOCORT (BUDESONIDE) [Concomitant]

REACTIONS (13)
  - Drug hypersensitivity [None]
  - Pyrexia [None]
  - Chills [None]
  - Cough [None]
  - Back pain [None]
  - Arthralgia [None]
  - C-reactive protein increased [None]
  - Diarrhoea [None]
  - Rash pustular [None]
  - Skin oedema [None]
  - Neutrophilic dermatosis [None]
  - Acute febrile neutrophilic dermatosis [None]
  - Toxicity to various agents [None]
